FAERS Safety Report 9274629 (Version 2)
Quarter: 2013Q2

REPORT INFORMATION
  Report Type: Spontaneous
  Country: US (occurrence: None)
  Receive Date: 20130429
  Receipt Date: 20130522
  Transmission Date: 20140414
  Serious: Yes (Hospitalization, Other)
  Sender: FDA-Public Use
  Company Number: 2012-001427

PATIENT
  Age: 65 Year
  Sex: Female

DRUGS (59)
  1. ACTONEL [Suspect]
     Indication: OSTEOPOROSIS
     Route: 048
     Dates: start: 200305, end: 200605
  2. ACTONEL [Suspect]
     Indication: OSTEOPOROSIS PROPHYLAXIS
     Route: 048
     Dates: start: 200305, end: 200605
  3. ACTONEL [Suspect]
     Indication: OSTEOPENIA
     Route: 048
     Dates: start: 200305, end: 200605
  4. ACTONEL [Suspect]
     Route: 048
     Dates: start: 200305, end: 200605
  5. FOSAMAX (ALENDRONATE SODIUM) [Suspect]
     Indication: OSTEOPOROSIS
     Dates: start: 200003, end: 200010
  6. FOSAMAX (ALENDRONATE SODIUM) [Suspect]
     Indication: OSTEOPOROSIS PROPHYLAXIS
     Dates: start: 200003, end: 200010
  7. FOSAMAX (ALENDRONATE SODIUM) [Suspect]
     Indication: OSTEOPENIA
     Dates: start: 200003, end: 200010
  8. BONIVA (IBANDRONATE SODIUM) [Suspect]
     Indication: OSTEOPOROSIS
     Route: 048
     Dates: start: 200605, end: 201003
  9. BONIVA (IBANDRONATE SODIUM) [Suspect]
     Indication: OSTEOPOROSIS PROPHYLAXIS
     Route: 048
     Dates: start: 200605, end: 201003
  10. BONIVA (IBANDRONATE SODIUM) [Suspect]
     Indication: OSTEOPENIA
     Route: 048
     Dates: start: 200605, end: 201003
  11. ACTONEL [Suspect]
     Indication: OSTEOPOROSIS
     Route: 048
     Dates: start: 200011, end: 200305
  12. ACTONEL [Suspect]
     Indication: OSTEOPOROSIS PROPHYLAXIS
     Route: 048
     Dates: start: 200011, end: 200305
  13. ACTONEL [Suspect]
     Indication: OSTEOPENIA
     Route: 048
     Dates: start: 200011, end: 200305
  14. PREMARIN (ESTROGENS CONJUGATED) [Concomitant]
  15. MOBIC (MELOXICAM) [Concomitant]
  16. BEXTRA (VALDECOXIB) [Concomitant]
  17. METHOCARBAMOL (METHOCARBAMOL) [Concomitant]
  18. CYCLOBENZAPRINE (CYCLOBENZAPRINE) [Concomitant]
  19. HYDROCODONE W/PARACETAMOL (HYDROCODONE, PARACETAMOL) [Concomitant]
  20. NEURONTIN (GABAPENTIN) [Concomitant]
  21. ALPRAZOLAM (ALPRAZOLAM) [Concomitant]
  22. AMBIEN (ZOLPIDEM TARTRATE) [Concomitant]
  23. CYMBALTA (DULOXETINE HYDROCHLORIDE) [Concomitant]
  24. PRILOSEC [Concomitant]
  25. PROTONIX (PANTOPRAZOLE SODIUM SESQUIHYDRATE) [Concomitant]
  26. LOPERAMIDE (LOPERAMIDE) [Concomitant]
  27. BISOPROLOL FUMARATE (BISOPROLOL FUMARATE) [Concomitant]
  28. ZETIA (EZETIMIBE) [Concomitant]
  29. MICROZIDE  (HYDROCHLOROTHIAZIDE) [Concomitant]
  30. FUROSEMIDE (FUROSEMIDE) [Concomitant]
  31. ATORVASTATIN (ATORVASTATIN) [Concomitant]
  32. CRESTOR (ROSUVASTATIN CALCIUM) [Concomitant]
  33. TRICOR?(FENOFIBRATE) [Concomitant]
  34. VENASTAT (AESCULUS HIPPOCASTANUM SEED) [Concomitant]
  35. CEPHALEXIN  (CEFALEXIN) [Concomitant]
  36. DOXYCYCLINE (DOXYCYCLINE) [Concomitant]
  37. SULFAMETHOXAZOLE (SULFAMETHOXAZOLE) [Concomitant]
  38. CEFZIL (CEFPROZIL) [Concomitant]
  39. OMNICEF (CEFDINIR) [Concomitant]
  40. ZITHROMAX (AZITHROMYCIN) [Concomitant]
  41. TEQUIN (GATIFLO)(ACIN) [Concomitant]
  42. PHENAZOPYRIDINE (PHENAZOPYRIDINE) [Concomitant]
  43. DIFLUCAN (FLUCONAZOLE) [Concomitant]
  44. CLOTRIMAZOLE (CLOTRIMAZOLE) [Concomitant]
  45. LOTRISONE (BETAMETHASONE DIPROPIONATE, CLOTRIMAZOLE) [Concomitant]
  46. NYSTATIN (NYSTATIN) [Concomitant]
  47. OCUFLOX (OFLOXACIN) [Concomitant]
  48. PROTOPIC (TACROLIMUS) [Concomitant]
  49. METHYLPREDNISOLONE (METHYLPREDNISOLONE) [Concomitant]
  50. ALLEGRA [Concomitant]
  51. BENZONATATE (BENZONATATE) [Concomitant]
  52. ORPHENADRINE CITRATE (ORPHENADRINE CITRATE) [Concomitant]
  53. TRI-VENT DM (DEXTROMETHORPHAN HYDROBROMIDE, GUAIFENESIN, PSEUDOEPHEDRINE HYDROCHLORIDE) [Concomitant]
  54. CHERATUSSIN AC (CODEINE, GUAIFENESIN) [Concomitant]
  55. PHENERGAN (PROMETHAZINE) [Concomitant]
  56. GUIATUSS AC (CODEINE PHOSPHATE, GUAIFENESIN) [Concomitant]
  57. QUINDAL HD  (CHLORPHENAMINE MALEATE, HYDROCODONE BITARTRATE, PHENYLEPHRINE HYDROCHLORIDE) [Concomitant]
  58. ENDAL HD (CHLORPHENAMINE MALEATE, HYDROCODONE BITARTRATE, PHENYLEPHRINE HYDROCHLORIDE) [Concomitant]
  59. AMMONIUM LACTATE (AMMONIUM LACTATE) [Concomitant]

REACTIONS (16)
  - Atypical femur fracture [None]
  - Muscular weakness [None]
  - Pathological fracture [None]
  - Femur fracture [None]
  - Bone disorder [None]
  - Stress fracture [None]
  - Pain [None]
  - Low turnover osteopathy [None]
  - Chest pain [None]
  - Fall [None]
  - Fracture delayed union [None]
  - Walking aid user [None]
  - Bone pain [None]
  - Arthralgia [None]
  - Back pain [None]
  - Fracture displacement [None]
